FAERS Safety Report 15132289 (Version 1)
Quarter: 2018Q3

REPORT INFORMATION
  Report Type: Spontaneous
  Country: CN (occurrence: CN)
  Receive Date: 20180711
  Receipt Date: 20180711
  Transmission Date: 20181010
  Serious: Yes (Other)
  Sender: FDA-Public Use
  Company Number: CN-009507513-1807CHN003006

PATIENT
  Age: 72 Year
  Sex: Male
  Weight: 55 kg

DRUGS (3)
  1. TIENAM [Suspect]
     Active Substance: CILASTATIN SODIUM\IMIPENEM
     Indication: LUNG INFECTION
     Dosage: 1 G, BID
     Route: 041
     Dates: start: 20180406, end: 20180410
  2. SODIUM CHLORIDE. [Suspect]
     Active Substance: SODIUM CHLORIDE
     Indication: MEDICATION DILUTION
     Dosage: 100 ML, BID
     Route: 042
     Dates: start: 20180406, end: 20180410
  3. MOXIFLOXACIN HYDROCHLORIDE (+) SODIUM CHLORIDE [Suspect]
     Active Substance: MOXIFLOXACIN HYDROCHLORIDE
     Indication: LUNG INFECTION
     Dosage: 250 ML, QD
     Route: 041
     Dates: start: 20180406, end: 20180410

REACTIONS (14)
  - Swelling [Recovering/Resolving]
  - Erythema [None]
  - Rash [Recovering/Resolving]
  - Skin exfoliation [Recovering/Resolving]
  - Mucosal erosion [Recovering/Resolving]
  - Wound [None]
  - Drug eruption [None]
  - Oral mucosal exfoliation [None]
  - Rash maculo-papular [None]
  - Oedema [None]
  - Scrotal disorder [None]
  - Peripheral swelling [None]
  - Flushing [Recovering/Resolving]
  - Secretion discharge [None]

NARRATIVE: CASE EVENT DATE: 20180410
